FAERS Safety Report 5982111-2 (Version None)
Quarter: 2008Q4

REPORT INFORMATION
  Report Type: 
  Country: None (occurrence: None)
  Receive Date: 20081202
  Receipt Date: 20081117
  Transmission Date: 20090506
  Serious: Yes (Death)
  Sender: FDA-Public Use
  Company Number: 2008BM000212

PATIENT
  Age: 7 Year
  Sex: Male
  Weight: 17 kg

DRUGS (1)
  1. NAGLAZYME [Suspect]
     Indication: MUCOPOLYSACCHARIDOSIS VI
     Dosage: 15 MG;QW; IVDRP
     Route: 041
     Dates: start: 20070308, end: 20081021

REACTIONS (3)
  - ANXIETY [None]
  - CARDIAC ARREST [None]
  - SYNCOPE [None]
